FAERS Safety Report 17284431 (Version 1)
Quarter: 2020Q1

REPORT INFORMATION
  Report Type: Spontaneous
  Country: PT (occurrence: PT)
  Receive Date: 20200117
  Receipt Date: 20200117
  Transmission Date: 20200409
  Serious: Yes (Other)
  Sender: FDA-Public Use
  Company Number: PT-JNJFOC-20200115336

PATIENT
  Age: 33 Year
  Sex: Female

DRUGS (2)
  1. TOPAMAX [Suspect]
     Active Substance: TOPIRAMATE
     Indication: MIGRAINE WITH AURA
     Dosage: HE TOOK 1 CAPSULE 25 MG AT DINNER (1ST DOSE) AND WOKE UP IN THE NEXT MORNING WITH BILATERAL BLURRED
     Route: 048
     Dates: start: 20191017, end: 20191017
  2. MINIGESTE [Concomitant]
     Active Substance: ETHINYL ESTRADIOL\GESTODENE
     Indication: MIGRAINE WITH AURA
     Dosage: ETINILESTRADIOL/GESTODENO
     Route: 048

REACTIONS (2)
  - Vision blurred [Recovered/Resolved]
  - Macular oedema [Recovered/Resolved]

NARRATIVE: CASE EVENT DATE: 20191018
